FAERS Safety Report 6275954-1 (Version None)
Quarter: 2009Q3

REPORT INFORMATION
  Report Type: 
  Country: None (occurrence: None)
  Receive Date: 20090720
  Receipt Date: 20090708
  Transmission Date: 20100115
  Serious: Yes (Hospitalization, Other)
  Sender: FDA-Public Use
  Company Number: 2009AP002777

PATIENT
  Sex: Male

DRUGS (1)
  1. AMIODARONE HCL [Suspect]
     Dosage: 150 MG; IVBOL; 1 MG MIN; IV
     Route: 040

REACTIONS (11)
  - ACCESSORY CARDIAC PATHWAY [None]
  - ATRIAL FIBRILLATION [None]
  - CHILLS [None]
  - DIZZINESS [None]
  - ELECTROCARDIOGRAM DELTA WAVES ABNORMAL [None]
  - ELECTROCARDIOGRAM PR SHORTENED [None]
  - ELECTROCARDIOGRAM T WAVE ABNORMAL [None]
  - MALAISE [None]
  - PALLOR [None]
  - TORSADE DE POINTES [None]
  - VENTRICULAR EXTRASYSTOLES [None]
